FAERS Safety Report 12326323 (Version 1)
Quarter: 2016Q2

REPORT INFORMATION
  Report Type: Spontaneous
  Country: US (occurrence: None)
  Receive Date: 20160502
  Receipt Date: 20160502
  Transmission Date: 20160815
  Serious: Yes (Other)
  Sender: FDA-Public Use
  Company Number: None

PATIENT
  Age: 59 Year
  Sex: Female
  Weight: 92.99 kg

DRUGS (11)
  1. VITAMIN D3 [Concomitant]
     Active Substance: CHOLECALCIFEROL
  2. ALA [Concomitant]
  3. WELLBUTRIN XL [Concomitant]
     Active Substance: BUPROPION HYDROCHLORIDE
  4. VITAMIN B6 [Concomitant]
     Active Substance: PYRIDOXINE HYDROCHLORIDE
  5. NEULASTA [Suspect]
     Active Substance: PEGFILGRASTIM
     Indication: CHEMOTHERAPY
     Dosage: 1 INJECTION(S) 27 HRS POST CHEMO APPLIED AS MEDICATED PATCH TO SKIN
     Route: 061
     Dates: start: 20160316, end: 20160406
  6. METFORMIN [Concomitant]
     Active Substance: METFORMIN HYDROCHLORIDE
  7. NEULASTA [Suspect]
     Active Substance: PEGFILGRASTIM
     Indication: CHEMOTHERAPY
     Dosage: 1 INJECTION(S) 27 HRS POST CHEMO SUBCUTANEOUS
     Route: 058
     Dates: start: 20160317, end: 20160406
  8. MULTI VITAMIN [Concomitant]
     Active Substance: VITAMINS
  9. VITAMIN C [Concomitant]
     Active Substance: ASCORBIC ACID
  10. RAMIPRYL [Concomitant]
  11. L GLUTAMINE [Concomitant]
     Active Substance: GLUTAMINE

REACTIONS (7)
  - Gait disturbance [None]
  - Diarrhoea [None]
  - Arthralgia [None]
  - Bone pain [None]
  - Migraine [None]
  - Nausea [None]
  - Insomnia [None]

NARRATIVE: CASE EVENT DATE: 20160317
